FAERS Safety Report 5488473-7 (Version None)
Quarter: 2007Q4

REPORT INFORMATION
  Report Type: 
  Country: None (occurrence: None)
  Receive Date: 20071017
  Receipt Date: 20071010
  Transmission Date: 20080405
  Serious: Yes (Other)
  Sender: FDA-Public Use
  Company Number: CN-BRISTOL-MYERS SQUIBB COMPANY-13941349

PATIENT
  Age: 55 Year
  Sex: Male
  Weight: 55 kg

DRUGS (1)
  1. BARACLUDE [Suspect]
     Indication: HEPATITIS B VIRUS
     Route: 048
     Dates: start: 20070918, end: 20070918

REACTIONS (1)
  - HYPERSENSITIVITY [None]
